FAERS Safety Report 8509792-3 (Version None)
Quarter: 2012Q2

REPORT INFORMATION
  Report Type: 
  Country: None (occurrence: None)
  Receive Date: 20120405
  Receipt Date: 20090601
  Transmission Date: 20120825
  Serious: Yes (Hospitalization)
  Sender: FDA-Public Use
  Company Number: PHEH2009US05557

PATIENT
  Age: 74 Year
  Sex: Female

DRUGS (1)
  1. RECLAST [Suspect]
     Indication: OSTEOPOROSIS
     Dosage: INFUSION
     Dates: start: 20081101, end: 20081101

REACTIONS (4)
  - PAIN IN JAW [None]
  - MYALGIA [None]
  - BONE PAIN [None]
  - BEDRIDDEN [None]
